FAERS Safety Report 15105596 (Version 1)
Quarter: 2018Q3

REPORT INFORMATION
  Report Type: Spontaneous
  Country: US (occurrence: US)
  Receive Date: 20180704
  Receipt Date: 20180704
  Transmission Date: 20181010
  Serious: No
  Sender: FDA-Public Use
  Company Number: US-TEVA-2018-US-919578

PATIENT
  Age: 6 Year
  Sex: Male

DRUGS (1)
  1. AZITHROMYCIN ANHYDROUS. [Suspect]
     Active Substance: AZITHROMYCIN ANHYDROUS
     Indication: INFECTION
     Dosage: ORAL SUSPENSION, 200 MG/5 ML
     Route: 065

REACTIONS (2)
  - Abnormal behaviour [Unknown]
  - Allergic reaction to excipient [Unknown]
